FAERS Safety Report 24873424 (Version 1)
Quarter: 2025Q1

REPORT INFORMATION
  Report Type: Spontaneous
  Country: RO (occurrence: RO)
  Receive Date: 20250122
  Receipt Date: 20250122
  Transmission Date: 20250409
  Serious: Yes (Other)
  Sender: ROCHE
  Company Number: RO-ROCHE-10000183074

PATIENT
  Age: 72 Year
  Sex: Female

DRUGS (4)
  1. MYCOPHENOLATE MOFETIL [Suspect]
     Active Substance: MYCOPHENOLATE MOFETIL
     Indication: Pulmonary fibrosis
     Route: 065
     Dates: start: 202204
  2. MYCOPHENOLATE MOFETIL [Suspect]
     Active Substance: MYCOPHENOLATE MOFETIL
     Route: 065
     Dates: start: 202103
  3. CYCLOPHOSPHAMIDE [Concomitant]
     Active Substance: CYCLOPHOSPHAMIDE
  4. NINTEDANIB [Concomitant]
     Active Substance: NINTEDANIB
     Indication: Pulmonary fibrosis
     Dates: start: 202204

REACTIONS (1)
  - Breast cancer metastatic [Unknown]
